FAERS Safety Report 8584585-X (Version None)
Quarter: 2012Q3

REPORT INFORMATION
  Report Type: 
  Country: None (occurrence: None)
  Receive Date: 20120802
  Receipt Date: 20120802
  Transmission Date: 20120928
  Serious: Yes (Hospitalization)
  Sender: FDA-Public Use
  Company Number: None

PATIENT
  Sex: Female

DRUGS (1)
  1. XELODA [Suspect]
     Indication: BREAST CANCER METASTATIC
     Dosage: 2500MG BID ORAL
     Route: 048
     Dates: start: 20120727, end: 20120728

REACTIONS (3)
  - DYSPNOEA [None]
  - PAIN IN JAW [None]
  - CHEST DISCOMFORT [None]
